FAERS Safety Report 5541491-2 (Version None)
Quarter: 2007Q4

REPORT INFORMATION
  Report Type: 
  Country: None (occurrence: None)
  Receive Date: 20071210
  Receipt Date: 20071129
  Transmission Date: 20080405
  Serious: Yes (Other)
  Sender: FDA-Public Use
  Company Number: US-JNJFOC-20070900869

PATIENT
  Sex: Male
  Weight: 90.72 kg

DRUGS (8)
  1. INFLIXIMAB [Suspect]
     Route: 042
  2. INFLIXIMAB [Suspect]
     Route: 042
  3. INFLIXIMAB [Suspect]
     Route: 042
  4. INFLIXIMAB [Suspect]
     Route: 042
  5. INFLIXIMAB [Suspect]
     Indication: CROHN'S DISEASE
     Dosage: UNKNOWN INFUSIONS PRIOR TO BASELINE
     Route: 042
  6. ANTIHISTAMINES [Concomitant]
     Indication: PREMEDICATION
  7. METHOTREXATE [Concomitant]
     Indication: CROHN'S DISEASE
  8. MESALAMINE [Concomitant]
     Indication: CROHN'S DISEASE

REACTIONS (1)
  - PROSTATE CANCER [None]
